FAERS Safety Report 21404398 (Version 2)
Quarter: 2023Q1

REPORT INFORMATION
  Report Type: Spontaneous
  Country: US (occurrence: US)
  Receive Date: 20221003
  Receipt Date: 20230103
  Transmission Date: 20230418
  Serious: No
  Sender: FDA-Public Use
  Company Number: US-BAYER-2022A133191

PATIENT
  Age: 60 Year
  Sex: Female

DRUGS (2)
  1. ASTEPRO [Suspect]
     Active Substance: AZELASTINE HYDROCHLORIDE
     Indication: Hypersensitivity
     Dosage: UNK (ONE IN EACH NOSTRIL)
     Route: 045
     Dates: start: 20220923, end: 20220923
  2. ASTEPRO [Suspect]
     Active Substance: AZELASTINE HYDROCHLORIDE
     Indication: Nasopharyngitis

REACTIONS (4)
  - Sneezing [Recovered/Resolved]
  - Eye irritation [Not Recovered/Not Resolved]
  - Oropharyngeal pain [None]
  - Hypersensitivity [None]

NARRATIVE: CASE EVENT DATE: 20220923
